FAERS Safety Report 10082719 (Version 1)
Quarter: 2014Q2

REPORT INFORMATION
  Report Type: Spontaneous
  Country: DE (occurrence: DE)
  Receive Date: 20140416
  Receipt Date: 20140416
  Transmission Date: 20141212
  Serious: Yes (Other)
  Sender: FDA-Public Use
  Company Number: DE-AMGEN-DEUSP2014026210

PATIENT
  Sex: Male

DRUGS (4)
  1. ARANESP [Suspect]
     Indication: PRODUCT USED FOR UNKNOWN INDICATION
     Dosage: 100 MG, Q2WK
  2. ARANESP [Suspect]
  3. ARANESP [Suspect]
  4. ARANESP [Suspect]

REACTIONS (5)
  - Hypertension [Recovering/Resolving]
  - Renal cyst [Unknown]
  - Shunt occlusion [Unknown]
  - Haemoglobin abnormal [Not Recovered/Not Resolved]
  - Malaise [Unknown]
